FAERS Safety Report 7058950-6 (Version None)
Quarter: 2010Q4

REPORT INFORMATION
  Report Type: 
  Country: None (occurrence: None)
  Receive Date: 20101025
  Receipt Date: 20101015
  Transmission Date: 20110411
  Serious: Yes (Hospitalization)
  Sender: FDA-Public Use
  Company Number: US-BIOGENIDEC-2007BI004643

PATIENT
  Age: 61 Year
  Sex: Female
  Weight: 48 kg

DRUGS (17)
  1. TYSABRI [Suspect]
     Indication: MULTIPLE SCLEROSIS
     Route: 042
     Dates: start: 20061110, end: 20070111
  2. TYSABRI [Suspect]
     Route: 042
     Dates: end: 20080101
  3. TYSABRI [Suspect]
     Route: 042
  4. NEURONTIN [Concomitant]
     Indication: MUSCLE SPASMS
  5. AUGMENTIN '125' [Concomitant]
  6. PRILOSEC [Concomitant]
  7. PROVIGIL [Concomitant]
     Indication: FATIGUE
  8. KLONOPIN [Concomitant]
  9. ZOCOR [Concomitant]
  10. ZETIA [Concomitant]
  11. PROZAC [Concomitant]
  12. METOPROLOL [Concomitant]
  13. CYMBALTA [Concomitant]
     Indication: DEPRESSION
  14. VYTORIN [Concomitant]
  15. ADVAIR DISKUS 100/50 [Concomitant]
  16. SPIRIVA [Concomitant]
  17. NORTRIPTYLINE [Concomitant]
     Indication: SLEEP DISORDER

REACTIONS (4)
  - DYSPNOEA [None]
  - FATIGUE [None]
  - LUNG ADENOCARCINOMA [None]
  - PAIN IN EXTREMITY [None]
